FAERS Safety Report 26058415 (Version 1)
Quarter: 2025Q4

REPORT INFORMATION
  Report Type: Spontaneous
  Country: EU (occurrence: EU)
  Receive Date: 20251118
  Receipt Date: 20251118
  Transmission Date: 20260118
  Serious: Yes (Other)
  Sender: RANBAXY
  Company Number: EU-SUN PHARMACEUTICAL INDUSTRIES LTD-2025R1-536560

PATIENT
  Age: 13 Day

DRUGS (1)
  1. SODIUM CHLORIDE [Suspect]
     Active Substance: SODIUM CHLORIDE
     Indication: Inflammation
     Dosage: 20 MILLILITER/KILOGRAM
     Route: 065

REACTIONS (1)
  - Hypernatraemia [Recovered/Resolved]
